FAERS Safety Report 10631666 (Version 1)
Quarter: 2014Q4

REPORT INFORMATION
  Report Type: Spontaneous
  Country: US (occurrence: US)
  Receive Date: 20141205
  Receipt Date: 20141205
  Transmission Date: 20150529
  Serious: No
  Sender: FDA-Public Use
  Company Number: US-BRISTOL-MYERS SQUIBB COMPANY-20857835

PATIENT
  Sex: Male
  Weight: 111.11 kg

DRUGS (1)
  1. YERVOY [Suspect]
     Active Substance: IPILIMUMAB
     Indication: MALIGNANT MELANOMA
     Route: 042
     Dates: start: 20140519

REACTIONS (12)
  - Balance disorder [Unknown]
  - Clumsiness [Unknown]
  - Dizziness [Unknown]
  - Fatigue [Unknown]
  - Visual impairment [Unknown]
  - Decreased appetite [Unknown]
  - Libido decreased [Unknown]
  - Asthenia [Unknown]
  - Diplopia [Unknown]
  - Nausea [Unknown]
  - Hypoaesthesia [Unknown]
  - Paraesthesia [Unknown]

NARRATIVE: CASE EVENT DATE: 20140523
